FAERS Safety Report 7772910-9 (Version None)
Quarter: 2011Q3

REPORT INFORMATION
  Report Type: 
  Country: None (occurrence: None)
  Receive Date: 20110922
  Receipt Date: 20100816
  Transmission Date: 20111222
  Serious: No
  Sender: FDA-Public Use
  Company Number: US-ASTRAZENECA-2009UW08938

PATIENT
  Age: 395 Month
  Sex: Male
  Weight: 179.6 kg

DRUGS (11)
  1. SEROQUEL [Suspect]
     Indication: POST-TRAUMATIC STRESS DISORDER
     Dosage: 20 TO 200 MG
     Route: 048
     Dates: start: 20020101, end: 20071001
  2. LESCOL [Concomitant]
  3. SEROQUEL [Suspect]
     Dosage: 25-200 MG
     Route: 048
     Dates: start: 20020228, end: 20060601
  4. ZYPREXA [Suspect]
     Indication: INSOMNIA
     Dates: start: 20030101, end: 20070101
  5. SEROQUEL [Suspect]
     Dosage: 25-200 MG
     Route: 048
     Dates: start: 20020228, end: 20060601
  6. ZYPREXA [Suspect]
     Indication: PAIN
     Dates: start: 20030101, end: 20070101
  7. SEROQUEL [Suspect]
     Dosage: 25-200 MG
     Route: 048
     Dates: start: 20020228, end: 20060601
  8. ZYPREXA [Suspect]
     Indication: DEPRESSION
     Dates: start: 20030101, end: 20070101
  9. SEROQUEL [Suspect]
     Indication: DEPRESSION
     Dosage: 20 TO 200 MG
     Route: 048
     Dates: start: 20020101, end: 20071001
  10. SEROQUEL [Suspect]
     Indication: ANXIETY
     Dosage: 20 TO 200 MG
     Route: 048
     Dates: start: 20020101, end: 20071001
  11. LIPITOR [Concomitant]

REACTIONS (3)
  - OBESITY [None]
  - SLEEP APNOEA SYNDROME [None]
  - TYPE 2 DIABETES MELLITUS [None]
